FAERS Safety Report 9419647 (Version 1)
Quarter: 2013Q3

REPORT INFORMATION
  Report Type: Spontaneous
  Country: US (occurrence: None)
  Receive Date: 20130723
  Receipt Date: 20130723
  Transmission Date: 20140515
  Serious: Yes (Hospitalization, Other)
  Sender: FDA-Public Use
  Company Number: 2013US001680

PATIENT
  Age: 56 Year
  Sex: Female
  Weight: 52 kg

DRUGS (1)
  1. ICLUSIG [Suspect]
     Indication: CHRONIC MYELOID LEUKAEMIA
     Route: 048
     Dates: start: 20130115

REACTIONS (7)
  - Splenomegaly [None]
  - Pancytopenia [None]
  - Disease progression [None]
  - Nausea [None]
  - Vomiting [None]
  - Abdominal pain [None]
  - Febrile neutropenia [None]
